FAERS Safety Report 4395071-5 (Version None)
Quarter: 2004Q3

REPORT INFORMATION
  Report Type: 
  Country: None (occurrence: None)
  Receive Date: 20040706
  Receipt Date: 20040623
  Transmission Date: 20050211
  Serious: Yes (Other)
  Sender: FDA-Public Use
  Company Number: US-2004-027633

PATIENT
  Age: 56 Year
  Sex: Male

DRUGS (3)
  1. LEUKINE [Suspect]
     Indication: COLONY STIMULATING FACTOR PROPHYLAXIS
     Dosage: 1X/DAY, SUBCUTANEOUS
     Route: 058
  2. DAUNORUBICIN HCL [Concomitant]
  3. CYTARABINE [Concomitant]

REACTIONS (3)
  - ACUTE FEBRILE NEUTROPHILIC DERMATOSIS [None]
  - INJECTION SITE INFECTION [None]
  - MYOSITIS [None]
